FAERS Safety Report 5914879-5 (Version None)
Quarter: 2008Q4

REPORT INFORMATION
  Report Type: 
  Country: None (occurrence: None)
  Receive Date: 20081010
  Receipt Date: 20081002
  Transmission Date: 20090506
  Serious: Yes (Other)
  Sender: FDA-Public Use
  Company Number: PHHY2008BR10790

PATIENT
  Age: 69 Year
  Sex: Male
  Weight: 82 kg

DRUGS (8)
  1. DESFERAL [Suspect]
     Indication: SERUM FERRITIN INCREASED
     Dosage: 1 DF, UNK
     Route: 058
     Dates: start: 20080101
  2. DESFERAL [Suspect]
     Indication: THALASSAEMIA BETA
     Dosage: 2 DF, ONCE/SINGLE
     Route: 058
     Dates: start: 20080609
  3. DESFERAL [Suspect]
     Dosage: 3 DF/DAY
     Route: 058
  4. DESFERAL [Suspect]
     Dosage: 4 AMPOULE/DAY
     Route: 058
  5. FOLIC ACID [Concomitant]
     Dosage: UNK
  6. PREDNISONE [Concomitant]
     Indication: PAIN
  7. PLASIL [Concomitant]
     Indication: NAUSEA
     Dosage: UNK
     Dates: start: 20080501
  8. ORAL ANTIDIABETICS [Concomitant]

REACTIONS (12)
  - DRUG INEFFECTIVE [None]
  - HYPOPHAGIA [None]
  - INJECTION SITE PAIN [None]
  - INJECTION SITE SWELLING [None]
  - MALAISE [None]
  - MOBILITY DECREASED [None]
  - NAUSEA [None]
  - PAIN [None]
  - SERUM FERRITIN INCREASED [None]
  - SPLEEN OPERATION [None]
  - SPLENOMEGALY [None]
  - WEIGHT DECREASED [None]
